FAERS Safety Report 11224883 (Version 2)
Quarter: 2016Q3

REPORT INFORMATION
  Report Type: Spontaneous
  Country: DK (occurrence: DK)
  Receive Date: 20150629
  Receipt Date: 20160822
  Transmission Date: 20161109
  Serious: Yes (Hospitalization)
  Sender: FDA-Public Use
  Company Number: DK-NOVOPROD-453217

PATIENT
  Age: 66 Year
  Sex: Female
  Weight: 77 kg

DRUGS (2)
  1. VAGIFEM [Suspect]
     Active Substance: ESTRADIOL
     Indication: HORMONE THERAPY
     Dosage: DOSIS: 1 VAGITORIETABLET DAGLIGT I 2 UGER, STYRKE: 25 MIKROGRAM
     Route: 067
     Dates: start: 20141218
  2. TIMOSAN DEPOT [Concomitant]
     Indication: GLAUCOMA
     Dates: start: 20110701

REACTIONS (2)
  - Peripheral swelling [Not Recovered/Not Resolved]
  - Deep vein thrombosis [Recovered/Resolved with Sequelae]

NARRATIVE: CASE EVENT DATE: 20141219
